FAERS Safety Report 8939813 (Version 3)
Quarter: 2013Q1

REPORT INFORMATION
  Report Type: Spontaneous
  Country: US (occurrence: US)
  Receive Date: 20121203
  Receipt Date: 20130315
  Transmission Date: 20140127
  Serious: Yes (Hospitalization, Other)
  Sender: FDA-Public Use
  Company Number: US-BIOGENIDEC-2012BI056349

PATIENT
  Sex: Male

DRUGS (2)
  1. AVONEX [Suspect]
     Indication: MULTIPLE SCLEROSIS
     Route: 030
     Dates: start: 20120413, end: 20120901
  2. AMPYRA [Concomitant]

REACTIONS (6)
  - Spinal column stenosis [Unknown]
  - Central nervous system lesion [Unknown]
  - Adverse event [Unknown]
  - Peroneal nerve palsy [Unknown]
  - Mobility decreased [Unknown]
  - Amnesia [Not Recovered/Not Resolved]
